FAERS Safety Report 4514691-8 (Version None)
Quarter: 2004Q4

REPORT INFORMATION
  Report Type: 
  Country: None (occurrence: None)
  Receive Date: 20041126
  Receipt Date: 20041111
  Transmission Date: 20050328
  Serious: Yes (Life-Threatening)
  Sender: FDA-Public Use
  Company Number: 2004-BP-09777YA

PATIENT
  Sex: Male

DRUGS (3)
  1. HARNAL (TAMSULOSIN) [Suspect]
     Dosage: 0.2 MG
     Route: 048
     Dates: end: 20041021
  2. PRAVASTATIN [Suspect]
     Dosage: 5 MG
     Route: 048
  3. CANDESARTAN CILEXETIL (CANDESARTAN CILEXETIL) [Concomitant]

REACTIONS (2)
  - DIZZINESS [None]
  - LOSS OF CONSCIOUSNESS [None]
